FAERS Safety Report 14285788 (Version 1)
Quarter: 2017Q4

REPORT INFORMATION
  Report Type: Spontaneous
  Country: US (occurrence: US)
  Receive Date: 20171214
  Receipt Date: 20171214
  Transmission Date: 20180321
  Serious: No
  Sender: FDA-Public Use
  Company Number: US-009507513-1712USA006054

PATIENT

DRUGS (5)
  1. ASCORBIC ACID. [Concomitant]
     Active Substance: ASCORBIC ACID
  2. NORVASC [Concomitant]
     Active Substance: AMLODIPINE BESYLATE
  3. ZEPATIER [Suspect]
     Active Substance: ELBASVIR\GRAZOPREVIR
     Indication: HEPATITIS C
     Dosage: 1 DF, QAM
     Route: 048
     Dates: start: 20171115
  4. VITAMINS (UNSPECIFIED) [Concomitant]
     Active Substance: VITAMINS
  5. KEFLEX [Concomitant]
     Active Substance: CEPHALEXIN

REACTIONS (1)
  - Frequent bowel movements [Unknown]

NARRATIVE: CASE EVENT DATE: 2017
